FAERS Safety Report 8785363 (Version 1)
Quarter: 2012Q4

REPORT INFORMATION
  Report Type: 
  Country: US (occurrence: US)
  Receive Date: 20120914
  Receipt Date: 20120914
  Transmission Date: 20130627
  Serious: No
  Sender: FDA-Public Use
  Company Number: US-PFIZER INC-2012224950

PATIENT
  Age: 6 Year
  Sex: Male
  Weight: 28.12 kg

DRUGS (5)
  1. REVATIO [Suspect]
     Indication: PULMONARY HYPERTENSION
     Dosage: 20 mg, 2x/day
     Route: 048
     Dates: start: 201107
  2. REVATIO [Suspect]
     Dosage: 20 mg, 3x/day
     Route: 048
     Dates: start: 2012
  3. FLORANEX [Concomitant]
     Indication: CONGENITAL MEGACOLON
     Dosage: UNK
  4. LEVOTHYROXINE [Concomitant]
     Dosage: UNK, 1x/day
  5. ZYRTEC [Concomitant]
     Dosage: UNK

REACTIONS (4)
  - Off label use [Unknown]
  - Pulmonary vascular disorder [Unknown]
  - Drug effect decreased [Unknown]
  - Drug ineffective [Unknown]
